FAERS Safety Report 6646748-X (Version None)
Quarter: 2010Q1

REPORT INFORMATION
  Report Type: 
  Country: None (occurrence: None)
  Receive Date: 20100305
  Receipt Date: 20100215
  Transmission Date: 20100710
  Serious: Yes (Hospitalization)
  Sender: FDA-Public Use
  Company Number: C10-016

PATIENT
  Sex: Female
  Weight: 58.0604 kg

DRUGS (3)
  1. CHEST CONGESTION RELIEF D [Suspect]
     Indication: NASAL DECONGESTION THERAPY
     Dosage: SOLID, ORAL, Q4D
     Route: 048
  2. SINGULAIR [Concomitant]
  3. ALBUTEROL [Concomitant]

REACTIONS (4)
  - DIZZINESS [None]
  - DYSPNOEA [None]
  - HEART RATE INCREASED [None]
  - HEART RATE IRREGULAR [None]
